FAERS Safety Report 5329074-0 (Version None)
Quarter: 2007Q2

REPORT INFORMATION
  Report Type: 
  Country: None (occurrence: None)
  Receive Date: 20070518
  Receipt Date: 20070508
  Transmission Date: 20071010
  Serious: Yes (Death, Hospitalization, Disabling, Other)
  Sender: FDA-Public Use
  Company Number: US-PFIZER INC-2006121144

PATIENT
  Sex: Female

DRUGS (2)
  1. CELEBREX [Suspect]
     Indication: ARTHRITIS
     Route: 048
     Dates: start: 20000515, end: 20000901
  2. VIOXX [Suspect]
     Route: 048
     Dates: start: 20000901, end: 20001203

REACTIONS (3)
  - MYOCARDIAL INFARCTION [None]
  - PAIN [None]
  - PULMONARY EMBOLISM [None]
